FAERS Safety Report 4820248-1 (Version None)
Quarter: 2005Q4

REPORT INFORMATION
  Report Type: 
  Country: None (occurrence: None)
  Receive Date: 20051104
  Receipt Date: 20051025
  Transmission Date: 20060501
  Serious: Yes (Hospitalization)
  Sender: FDA-Public Use
  Company Number: FR-BRISTOL-MYERS SQUIBB COMPANY-13160775

PATIENT
  Age: 50 Year
  Sex: Male

DRUGS (11)
  1. GLUCOPHAGE [Suspect]
     Route: 048
     Dates: start: 20050814
  2. PLAVIX [Suspect]
     Route: 048
     Dates: start: 20050810
  3. TRIATEC [Suspect]
     Route: 048
     Dates: start: 20050811
  4. KARDEGIC [Suspect]
     Route: 048
     Dates: start: 20050811
  5. KREDEX [Suspect]
     Route: 048
     Dates: start: 20050814
  6. NOVONORM [Suspect]
     Route: 048
     Dates: start: 20050814
  7. ALLOPURINOL [Suspect]
     Route: 048
  8. LEXOMIL [Suspect]
     Route: 048
  9. NEXIUM [Suspect]
     Route: 048
  10. DOLIPRANE [Suspect]
     Route: 048
  11. TAHOR [Suspect]
     Route: 048

REACTIONS (1)
  - THROMBOCYTOPENIA [None]
